FAERS Safety Report 8616792-1 (Version None)
Quarter: 2012Q3

REPORT INFORMATION
  Report Type: 
  Country: None (occurrence: None)
  Receive Date: 20120823
  Receipt Date: 20120807
  Transmission Date: 20120928
  Serious: No
  Sender: FDA-Public Use
  Company Number: US-009507513-1208USA004220

PATIENT

DRUGS (7)
  1. PEG-INTRON [Suspect]
     Route: 058
  2. LORAZEPAM [Concomitant]
  3. INCIVEK [Suspect]
     Dosage: 2 DF, Q8H
     Route: 048
  4. FERROUS SULFATE TAB [Concomitant]
  5. LEVOTHYROXINE SODIUM [Concomitant]
  6. TYLENOL [Concomitant]
  7. REBETOL [Suspect]
     Route: 048

REACTIONS (1)
  - NAUSEA [None]
